FAERS Safety Report 8837180 (Version 1)
Quarter: 2012Q4

REPORT INFORMATION
  Report Type: Spontaneous
  Country: US (occurrence: None)
  Receive Date: 20121011
  Receipt Date: 20121011
  Transmission Date: 20130627
  Serious: Yes (Hospitalization, Other)
  Sender: FDA-Public Use
  Company Number: 2012033555

PATIENT
  Age: 30 Year
  Sex: Female

DRUGS (3)
  1. HUMATE-P [Suspect]
     Indication: PROPHYLAXIS
     Dosage: 3000 IU, Humate P (Antihemophilic Factor (Human) vWF, Dried, Pasteurized)
  2. PLATELETS (PLATELETS, HUMAN BLOOD) [Concomitant]
  3. PACKED RBC^S (RED BLOOD CELLS) [Concomitant]

REACTIONS (3)
  - Caesarean section [None]
  - Postpartum haemorrhage [None]
  - Exposure during pregnancy [None]
